FAERS Safety Report 20184454 (Version 2)
Quarter: 2025Q1

REPORT INFORMATION
  Report Type: Spontaneous
  Country: US (occurrence: US)
  Receive Date: 20211214
  Receipt Date: 20250203
  Transmission Date: 20250409
  Serious: Yes (Other)
  Sender: NOVO NORDISK
  Company Number: US-NOVOPROD-792988

PATIENT
  Age: 70 Year
  Sex: Female

DRUGS (3)
  1. NOVOLIN 70/30 [Suspect]
     Active Substance: INSULIN HUMAN
     Indication: Type 2 diabetes mellitus
     Route: 058
     Dates: start: 2017
  2. NOVOLIN 70/30 [Suspect]
     Active Substance: INSULIN HUMAN
     Route: 058
     Dates: start: 20210303
  3. NOVOLIN 70/30 [Suspect]
     Active Substance: INSULIN HUMAN
     Route: 058
     Dates: start: 20210220

REACTIONS (6)
  - Breast cancer [Unknown]
  - Herpes zoster [Unknown]
  - Sinusitis [Recovered/Resolved]
  - Dermatitis allergic [Unknown]
  - Blood glucose increased [Recovered/Resolved]
  - Product quality issue [Recovered/Resolved]

NARRATIVE: CASE EVENT DATE: 20200101
